FAERS Safety Report 12927929 (Version 1)
Quarter: 2016Q4

REPORT INFORMATION
  Report Type: Spontaneous
  Country: US (occurrence: US)
  Receive Date: 20161110
  Receipt Date: 20161110
  Transmission Date: 20170207
  Serious: Yes (Hospitalization)
  Sender: FDA-Public Use
  Company Number: None

PATIENT
  Age: 59 Year
  Sex: Male
  Weight: 101.4 kg

DRUGS (7)
  1. ECOTRIN [Concomitant]
     Active Substance: ASPIRIN
  2. NTG [Concomitant]
     Active Substance: NITROGLYCERIN
  3. PRAVACHOL [Concomitant]
     Active Substance: PRAVASTATIN SODIUM
  4. COREG [Concomitant]
     Active Substance: CARVEDILOL
  5. LASIX [Concomitant]
     Active Substance: FUROSEMIDE
  6. LISINOPRIL. [Suspect]
     Active Substance: LISINOPRIL
     Indication: HYPERTENSION
     Dosage: CHRONIC
     Route: 048
  7. ALLOPURINOL. [Concomitant]
     Active Substance: ALLOPURINOL

REACTIONS (2)
  - Acute kidney injury [None]
  - Hyperkalaemia [None]

NARRATIVE: CASE EVENT DATE: 20150813
